FAERS Safety Report 7314962-6 (Version None)
Quarter: 2011Q1

REPORT INFORMATION
  Report Type: 
  Country: None (occurrence: None)
  Receive Date: 20110225
  Receipt Date: 20100223
  Transmission Date: 20110831
  Serious: No
  Sender: FDA-Public Use
  Company Number: US-MYLANLABS-2010S1002838

PATIENT
  Age: 18 Year
  Sex: Male

DRUGS (3)
  1. AMNESTEEM [Suspect]
     Indication: ACNE
     Route: 048
     Dates: start: 20100106, end: 20100121
  2. MULTI-VITAMIN [Concomitant]
  3. DAYQUIL [Concomitant]

REACTIONS (3)
  - WEIGHT DECREASED [None]
  - FAECES DISCOLOURED [None]
  - DIARRHOEA [None]
